FAERS Safety Report 21542114 (Version 1)
Quarter: 2022Q4

REPORT INFORMATION
  Report Type: Spontaneous
  Country: US (occurrence: US)
  Receive Date: 20221102
  Receipt Date: 20221102
  Transmission Date: 20230112
  Serious: Yes (Hospitalization)
  Sender: FDA-Public Use
  Company Number: US-GE HEALTHCARE-2022CSU007774

PATIENT
  Age: 75 Year
  Sex: Male

DRUGS (6)
  1. OMNIPAQUE [Suspect]
     Active Substance: IOHEXOL
     Indication: Computerised tomogram abdomen
     Dosage: 1100 ML, SINGLE
     Route: 048
  2. OMNIPAQUE [Suspect]
     Active Substance: IOHEXOL
     Indication: Product used for unknown indication
     Dosage: 1100 ML
     Route: 048
  3. OMNIPAQUE [Suspect]
     Active Substance: IOHEXOL
     Indication: Abdominal distension
  4. OMNIPAQUE [Suspect]
     Active Substance: IOHEXOL
     Indication: Hypotension
  5. ISOVUE [Suspect]
     Active Substance: IOPAMIDOL
     Indication: Computerised tomogram abdomen
     Dosage: 120 ML, SINGLE
     Route: 042
  6. ISOVUE [Suspect]
     Active Substance: IOPAMIDOL
     Indication: Product used for unknown indication

REACTIONS (1)
  - Hyperthyroidism [Recovered/Resolved]
